FAERS Safety Report 14892562 (Version 1)
Quarter: 2018Q2

REPORT INFORMATION
  Report Type: Spontaneous
  Country: US (occurrence: US)
  Receive Date: 20180426
  Receipt Date: 20180426
  Transmission Date: 20180711
  Serious: Yes (Other)
  Sender: FDA-Public Use
  Company Number: None

PATIENT
  Age: 62 Year
  Sex: Female
  Weight: 72 kg

DRUGS (8)
  1. SOLARAY VITAMIN [Concomitant]
  2. MAGNESIUM MALEATE [Concomitant]
  3. CRESTOR [Concomitant]
     Active Substance: ROSUVASTATIN CALCIUM
  4. VITAMIN B COMPLEX [Concomitant]
     Active Substance: CYANOCOBALAMIN\DEXPANTHENOL\NIACINAMIDE\PYRIDOXINE HYDROCHLORIDE\RIBOFLAVIN 5^-PHOSPHATE SODIUM\THIAMINE HYDROCHLORIDE\VITAMIN B COMPLEX
  5. ATIVAN [Suspect]
     Active Substance: LORAZEPAM
  6. VITAMIN D [Concomitant]
     Active Substance: CHOLECALCIFEROL
  7. CO-Q 10 [Concomitant]
     Active Substance: UBIDECARENONE
  8. PRASUGREL HCL 10 MG TAB [Suspect]
     Active Substance: PRASUGREL HYDROCHLORIDE
     Indication: THROMBOSIS PROPHYLAXIS
     Dosage: ?          QUANTITY:.5 TABLET(S);?
     Route: 048
     Dates: start: 20180424, end: 20180424

REACTIONS (11)
  - Arrhythmia [None]
  - Cardiac flutter [None]
  - Discomfort [None]
  - Agitation [None]
  - Nervousness [None]
  - Hypersomnia [None]
  - Fatigue [None]
  - Extrasystoles [None]
  - Atrial fibrillation [None]
  - Asthenia [None]
  - Heart rate increased [None]

NARRATIVE: CASE EVENT DATE: 20180424
